FAERS Safety Report 11593657 (Version 1)
Quarter: 2015Q4

REPORT INFORMATION
  Report Type: Report from Study
  Country: KH (occurrence: KH)
  Receive Date: 20151005
  Receipt Date: 20151005
  Transmission Date: 20160304
  Serious: Yes (Other)
  Sender: FDA-Public Use
  Company Number: KH-GLAXOSMITHKLINE-KH2015GSK140873

PATIENT

DRUGS (4)
  1. PROGUANIL [Suspect]
     Active Substance: PROGUANIL
     Indication: PLASMODIUM FALCIPARUM INFECTION
  2. PRIMAQUINE [Concomitant]
     Active Substance: PRIMAQUINE PHOSPHATE
  3. ATOVAQUONE. [Suspect]
     Active Substance: ATOVAQUONE
  4. ARTESUNATE [Suspect]
     Active Substance: ARTESUNATE
     Indication: PLASMODIUM FALCIPARUM INFECTION

REACTIONS (1)
  - Liver injury [Unknown]
